FAERS Safety Report 8807942 (Version 2)
Quarter: 2015Q2

REPORT INFORMATION
  Report Type: Report from Study
  Country: US (occurrence: US)
  Receive Date: 20120925
  Receipt Date: 20150622
  Transmission Date: 20150821
  Serious: Yes (Death)
  Sender: FDA-Public Use
  Company Number: US-ROCHE-1127515

PATIENT
  Age: 57 Year
  Sex: Female

DRUGS (11)
  1. AVASTIN [Suspect]
     Active Substance: BEVACIZUMAB
     Route: 042
  2. GEMCITABINE [Concomitant]
     Active Substance: GEMCITABINE\GEMCITABINE HYDROCHLORIDE
  3. ARANESP [Concomitant]
     Active Substance: DARBEPOETIN ALFA
     Route: 065
  4. ALOXI [Concomitant]
     Active Substance: PALONOSETRON HYDROCHLORIDE
     Route: 065
  5. ZOMETA [Concomitant]
     Active Substance: ZOLEDRONIC ACID
     Route: 065
  6. DECADRON [Concomitant]
     Active Substance: DEXAMETHASONE
     Route: 065
  7. DOCETAXEL. [Concomitant]
     Active Substance: DOCETAXEL
  8. AVASTIN [Suspect]
     Active Substance: BEVACIZUMAB
     Indication: BREAST CANCER FEMALE
     Route: 042
     Dates: start: 20061026
  9. CARBOPLATIN. [Concomitant]
     Active Substance: CARBOPLATIN
  10. DOXORUBICIN [Concomitant]
     Active Substance: DOXORUBICIN
  11. DOXIL [Concomitant]
     Active Substance: DOXORUBICIN HYDROCHLORIDE
     Route: 065

REACTIONS (5)
  - Fatigue [Unknown]
  - Death [Fatal]
  - Dizziness [Unknown]
  - Infected cyst [Recovered/Resolved]
  - Off label use [Unknown]

NARRATIVE: CASE EVENT DATE: 20070109
